FAERS Safety Report 11068100 (Version 2)
Quarter: 2015Q2

REPORT INFORMATION
  Report Type: Spontaneous
  Country: EE (occurrence: EE)
  Receive Date: 20150427
  Receipt Date: 20150511
  Transmission Date: 20150821
  Serious: Yes (Other)
  Sender: FDA-Public Use
  Company Number: EE-NOVOPROD-446844

PATIENT
  Sex: Male
  Weight: 4.5 kg

DRUGS (5)
  1. NOVORAPID [Suspect]
     Active Substance: INSULIN ASPART
     Dosage: 100 (UNITS: NOT SPECIFIED)
     Route: 064
     Dates: end: 20150227
  2. LEVEMIR [Suspect]
     Active Substance: INSULIN DETEMIR
     Indication: TYPE 2 DIABETES MELLITUS
     Dosage: 7-8 UNITS TWICE DAILY
     Route: 064
     Dates: start: 20141209, end: 20150227
  3. NOVORAPID [Suspect]
     Active Substance: INSULIN ASPART
     Indication: TYPE 2 DIABETES MELLITUS
     Dosage: 4-5 UNITS NOVORAPID AFTER EACH MAIN MEAL
     Route: 064
     Dates: start: 20150109
  4. METFORMIN [Concomitant]
     Active Substance: METFORMIN HYDROCHLORIDE
     Dosage: 3G
     Route: 064
     Dates: start: 20141104, end: 20150227
  5. NOVOMIX 30 FLEXPEN [Suspect]
     Active Substance: INSULIN ASPART
     Indication: TYPE 2 DIABETES MELLITUS
     Dosage: 12 (UNIT : NOT SPECIFIED)
     Route: 064
     Dates: start: 20150123, end: 20150128

REACTIONS (3)
  - Foetal macrosomia [Unknown]
  - Hypoglycaemia neonatal [Recovered/Resolved]
  - Foetal exposure during pregnancy [Recovered/Resolved]

NARRATIVE: CASE EVENT DATE: 20140609
